FAERS Safety Report 18663769 (Version 2)
Quarter: 2021Q2

REPORT INFORMATION
  Report Type: Spontaneous
  Country: JP (occurrence: JP)
  Receive Date: 20201225
  Receipt Date: 20210415
  Transmission Date: 20210717
  Serious: Yes (Other)
  Sender: FDA-Public Use
  Company Number: JP-AMGEN-JPNSP2020204117

PATIENT
  Age: 71 Year
  Sex: Female

DRUGS (1)
  1. PRALIA [Suspect]
     Active Substance: DENOSUMAB
     Indication: OSTEOPOROSIS
     Dosage: UNK, 5TH TIME
     Route: 065

REACTIONS (13)
  - Stomatitis [Not Recovered/Not Resolved]
  - Gingival recession [Not Recovered/Not Resolved]
  - Gastritis [Not Recovered/Not Resolved]
  - Sneezing [Not Recovered/Not Resolved]
  - Gingivitis [Not Recovered/Not Resolved]
  - Seasonal allergy [Not Recovered/Not Resolved]
  - Dental caries [Not Recovered/Not Resolved]
  - Rhinitis [Not Recovered/Not Resolved]
  - Gastric ulcer [Not Recovered/Not Resolved]
  - Epistaxis [Not Recovered/Not Resolved]
  - Injection site discolouration [Not Recovered/Not Resolved]
  - Arthralgia [Not Recovered/Not Resolved]
  - Eczema [Unknown]
